FAERS Safety Report 8102803-9 (Version None)
Quarter: 2011Q4

REPORT INFORMATION
  Report Type: 
  Country: None (occurrence: None)
  Receive Date: 20111222
  Receipt Date: 20111122
  Transmission Date: 20120403
  Serious: Yes (Death)
  Sender: FDA-Public Use
  Company Number: UTC-011010

PATIENT
  Age: 67 Year
  Sex: Male

DRUGS (1)
  1. TYVASO [Suspect]
     Dosage: (54 MCG), INHALATION
     Route: 055
     Dates: start: 20110428

REACTIONS (1)
  - PULMONARY ARTERIAL HYPERTENSION [None]
